FAERS Safety Report 10067491 (Version 1)
Quarter: 2014Q2

REPORT INFORMATION
  Report Type: Spontaneous
  Country: US (occurrence: US)
  Receive Date: 20140409
  Receipt Date: 20140409
  Transmission Date: 20141212
  Serious: Yes (Hospitalization)
  Sender: FDA-Public Use
  Company Number: US-JNJFOC-20140319343

PATIENT
  Sex: Female
  Weight: 112.18 kg

DRUGS (9)
  1. DURAGESIC [Suspect]
     Indication: PAIN
     Route: 062
     Dates: start: 2013
  2. HYDROCODONE [Concomitant]
     Indication: BREAKTHROUGH PAIN
     Dosage: 10/325 MG
     Route: 048
     Dates: start: 2013
  3. LEVOTHYROXINE [Concomitant]
     Indication: HYPOTHYROIDISM
     Route: 048
     Dates: start: 201401
  4. PROZAC [Concomitant]
     Indication: DEPRESSION
     Route: 048
     Dates: start: 201401
  5. LISINOPRIL [Concomitant]
     Indication: HYPERTENSION
     Route: 048
     Dates: start: 201303
  6. INTEGRA PLUS [Concomitant]
     Indication: NUTRITIONAL SUPPLEMENTATION
     Route: 048
     Dates: start: 201303
  7. LASIX [Concomitant]
     Indication: FLUID RETENTION
     Route: 048
     Dates: start: 201308
  8. POTASSIUM [Concomitant]
     Indication: DIURETIC THERAPY
     Route: 048
     Dates: start: 201308
  9. WARFARIN [Concomitant]
     Indication: ANTICOAGULANT THERAPY
     Route: 048
     Dates: start: 201308

REACTIONS (7)
  - Heart rate decreased [Recovered/Resolved]
  - Wrong technique in drug usage process [Recovered/Resolved]
  - Drug dose omission [Recovered/Resolved]
  - Breakthrough pain [Unknown]
  - Wrong technique in drug usage process [Unknown]
  - Product quality issue [Unknown]
  - Product quality issue [Unknown]
